FAERS Safety Report 5151487-0 (Version None)
Quarter: 2006Q4

REPORT INFORMATION
  Report Type: 
  Country: None (occurrence: None)
  Receive Date: 20061114
  Receipt Date: 20061114
  Transmission Date: 20070319
  Serious: Yes (Other)
  Sender: FDA-Public Use
  Company Number: None

PATIENT
  Age: 34 Year
  Sex: Female
  Weight: 73.4827 kg

DRUGS (1)
  1. ACETAMINOPHEN   EQILINE    500 MG [Suspect]
     Dates: start: 20061109, end: 20061109

REACTIONS (4)
  - ABDOMINAL PAIN UPPER [None]
  - COLD SWEAT [None]
  - HYPERHIDROSIS [None]
  - NAUSEA [None]
